FAERS Safety Report 25355008 (Version 1)
Quarter: 2025Q2

REPORT INFORMATION
  Report Type: Spontaneous
  Country: US (occurrence: US)
  Receive Date: 20250524
  Receipt Date: 20250524
  Transmission Date: 20250716
  Serious: No
  Sender: ELI LILLY AND COMPANY
  Company Number: US-ELI_LILLY_AND_COMPANY-US202505019792

PATIENT
  Sex: Female

DRUGS (1)
  1. TRULICITY [Suspect]
     Active Substance: DULAGLUTIDE
     Indication: Product used for unknown indication
     Route: 065

REACTIONS (7)
  - Blood glucose increased [Unknown]
  - Product dose omission issue [Unknown]
  - Hyperhidrosis [Unknown]
  - Headache [Unknown]
  - Insomnia [Unknown]
  - Hunger [Unknown]
  - Food craving [Unknown]
